FAERS Safety Report 18011982 (Version 1)
Quarter: 2020Q3

REPORT INFORMATION
  Report Type: Spontaneous
  Country: IT (occurrence: IT)
  Receive Date: 20200713
  Receipt Date: 20200713
  Transmission Date: 20201103
  Serious: Yes (Other)
  Sender: FDA-Public Use
  Company Number: IT-TEVA-2020-IT-1798709

PATIENT
  Age: 61 Year
  Sex: Male

DRUGS (3)
  1. FLUOROURACILE AHCL 50 MG/ML, SOLUZIONE PER INIEZIONE O INFUSIONE [Suspect]
     Active Substance: FLUOROURACIL SODIUM
     Dosage: 2244 MG
     Route: 042
     Dates: start: 20200603, end: 20200605
  2. OXALIPLATINO TEVA 5 MG / ML, CONCENTRATO PER SOLUZIONE PER INFUSIONE [Suspect]
     Active Substance: OXALIPLATIN
     Indication: RECTOSIGMOID CANCER RECURRENT
     Dosage: 153 MG
     Route: 042
     Dates: start: 20200506, end: 20200603
  3. FLUOROURACILE AHCL 50 MG/ML, SOLUZIONE PER INIEZIONE O INFUSIONE [Suspect]
     Active Substance: FLUOROURACIL SODIUM
     Indication: RECTOSIGMOID CANCER RECURRENT
     Dosage: 748 MG
     Route: 042
     Dates: start: 20200603, end: 20200604

REACTIONS (3)
  - Neutropenia [Recovering/Resolving]
  - Gastroenteritis [Recovering/Resolving]
  - Thrombocytopenia [Recovering/Resolving]

NARRATIVE: CASE EVENT DATE: 20200615
